FAERS Safety Report 4945568-1 (Version None)
Quarter: 2006Q1

REPORT INFORMATION
  Report Type: 
  Country: None (occurrence: None)
  Receive Date: 20060316
  Receipt Date: 20051207
  Transmission Date: 20060701
  Serious: Yes (Hospitalization, Disabling)
  Sender: FDA-Public Use
  Company Number: US-MERCK-0512USA01280

PATIENT
  Sex: Female
  Weight: 67 kg

DRUGS (2)
  1. VIOXX [Suspect]
     Indication: FIBROMYALGIA
     Route: 048
     Dates: start: 19990701, end: 20040901
  2. VIOXX [Suspect]
     Indication: PERIARTHRITIS
     Route: 048
     Dates: start: 19990701, end: 20040901

REACTIONS (5)
  - ANXIETY [None]
  - DEPRESSION [None]
  - INJURY [None]
  - PULMONARY EMBOLISM [None]
  - THROMBOSIS [None]
